FAERS Safety Report 14063200 (Version 1)
Quarter: 2017Q4

REPORT INFORMATION
  Report Type: Spontaneous
  Country: US (occurrence: US)
  Receive Date: 20171009
  Receipt Date: 20171009
  Transmission Date: 20180321
  Serious: No
  Sender: FDA-Public Use
  Company Number: US-ASTRAZENECA-2017SF00045

PATIENT
  Sex: Male

DRUGS (1)
  1. BYDUREON [Suspect]
     Active Substance: EXENATIDE
     Indication: TYPE 2 DIABETES MELLITUS
     Route: 058
     Dates: start: 2017, end: 2017

REACTIONS (2)
  - Glycosylated haemoglobin increased [Unknown]
  - Injection site nodule [Recovered/Resolved]

NARRATIVE: CASE EVENT DATE: 2017
